FAERS Safety Report 19820369 (Version 1)
Quarter: 2021Q3

REPORT INFORMATION
  Report Type: Spontaneous
  Country: US (occurrence: US)
  Receive Date: 20210910
  Receipt Date: 20210910
  Transmission Date: 20211014
  Serious: Yes (Hospitalization)
  Sender: FDA-Public Use
  Company Number: None

PATIENT
  Age: 53 Year
  Sex: Male

DRUGS (10)
  1. IMATINIB MESYLATE. [Suspect]
     Active Substance: IMATINIB MESYLATE
     Indication: CHRONIC LYMPHOCYTIC LEUKAEMIA
     Route: 048
     Dates: start: 20210506, end: 20210910
  2. TYLENOL [Concomitant]
     Active Substance: ACETAMINOPHEN
  3. KEPPRA [Concomitant]
     Active Substance: LEVETIRACETAM
  4. HYDROXYUREA 500MG [Concomitant]
     Active Substance: HYDROXYUREA
  5. METOPROLOL TARTRATE 100MG [Concomitant]
     Active Substance: METOPROLOL TARTRATE
  6. INDAPAMIDE 2.5MG [Concomitant]
  7. ELIQUIS [Concomitant]
     Active Substance: APIXABAN
  8. NYSTATIN 500000UNIT [Concomitant]
  9. LISINOPRIL 10MG [Concomitant]
     Active Substance: LISINOPRIL
  10. LEVOTHYROXINE SODIUM 75MCG [Concomitant]

REACTIONS (1)
  - Hospitalisation [None]

NARRATIVE: CASE EVENT DATE: 20210910
